FAERS Safety Report 18038085 (Version 1)
Quarter: 2020Q3

REPORT INFORMATION
  Report Type: Spontaneous
  Country: CZ (occurrence: CZ)
  Receive Date: 20200717
  Receipt Date: 20200717
  Transmission Date: 20201103
  Serious: Yes (Hospitalization, Other)
  Sender: FDA-Public Use
  Company Number: CZ-MYLANLABS-2020M1063758

PATIENT
  Age: 61 Year
  Sex: Male

DRUGS (5)
  1. OXALIPLATIN. [Suspect]
     Active Substance: OXALIPLATIN
     Indication: COLORECTAL CANCER METASTATIC
     Dosage: UNK
     Route: 065
     Dates: start: 20170102
  2. PANITUMUMAB [Suspect]
     Active Substance: PANITUMUMAB
     Dosage: UNK
     Route: 065
  3. 5?FU                               /00098801/ [Concomitant]
     Active Substance: FLUOROURACIL
     Indication: COLORECTAL CANCER METASTATIC
     Dosage: UNK
     Dates: start: 20170102
  4. PANITUMUMAB [Suspect]
     Active Substance: PANITUMUMAB
     Indication: COLORECTAL CANCER METASTATIC
     Dosage: UNK
     Route: 065
     Dates: start: 20170102
  5. FOLINIC ACID [Concomitant]
     Active Substance: LEUCOVORIN
     Indication: COLORECTAL CANCER METASTATIC
     Dosage: UNK
     Dates: start: 20170102

REACTIONS (9)
  - Skin toxicity [Unknown]
  - Pleural effusion [Not Recovered/Not Resolved]
  - Wound abscess [Recovering/Resolving]
  - Neutropenia [Unknown]
  - Colorectal cancer metastatic [Recovered/Resolved]
  - Hydrocholecystis [Unknown]
  - Rash [Unknown]
  - Upper respiratory tract infection [Unknown]
  - Ileus paralytic [Recovered/Resolved]

NARRATIVE: CASE EVENT DATE: 201906
